FAERS Safety Report 22624948 (Version 1)
Quarter: 2023Q2

REPORT INFORMATION
  Report Type: Spontaneous
  Country: US (occurrence: US)
  Receive Date: 20230621
  Receipt Date: 20230621
  Transmission Date: 20230722
  Serious: No
  Sender: FDA-Public Use
  Company Number: US-drreddys-SPO/USA/23/0166056

PATIENT
  Age: 16 Year

DRUGS (1)
  1. ACCUTANE [Suspect]
     Active Substance: ISOTRETINOIN
     Indication: Acne
     Dosage: RMA ISSUE DATE 31 MARCH 2023 12:51:23 PM, 18 MAY 2023 10:22:45 AM
     Dates: start: 20230331, end: 20230523

REACTIONS (1)
  - Abdominal pain upper [Recovered/Resolved]
